FAERS Safety Report 15918727 (Version 5)
Quarter: 2019Q2

REPORT INFORMATION
  Report Type: Spontaneous
  Country: US (occurrence: US)
  Receive Date: 20190205
  Receipt Date: 20190524
  Transmission Date: 20190711
  Serious: Yes (Death, Hospitalization, Other)
  Sender: FDA-Public Use
  Company Number: US-ASTRAZENECA-2018SF21391

PATIENT
  Age: 23955 Day
  Sex: Male
  Weight: 125.2 kg

DRUGS (30)
  1. PREVACID [Suspect]
     Active Substance: LANSOPRAZOLE
     Route: 065
     Dates: start: 19950510, end: 20030620
  2. OMEPRAZOLE. [Concomitant]
     Active Substance: OMEPRAZOLE
  3. LIPITOR [Concomitant]
     Active Substance: ATORVASTATIN CALCIUM
  4. PREVACID [Suspect]
     Active Substance: LANSOPRAZOLE
     Route: 065
     Dates: start: 200105, end: 200212
  5. METRONIDAZOLE. [Concomitant]
     Active Substance: METRONIDAZOLE
  6. TOPROL XL [Concomitant]
     Active Substance: METOPROLOL SUCCINATE
  7. BETIMOL [Concomitant]
     Active Substance: TIMOLOL
  8. LASIX [Concomitant]
     Active Substance: FUROSEMIDE
  9. LABETALOL [Concomitant]
     Active Substance: LABETALOL\LABETALOL HYDROCHLORIDE
  10. NORVASC [Concomitant]
     Active Substance: AMLODIPINE BESYLATE
  11. METHYLDOPA. [Concomitant]
     Active Substance: METHYLDOPA
  12. IMDUR [Concomitant]
     Active Substance: ISOSORBIDE MONONITRATE
  13. SIMCOR [Concomitant]
     Active Substance: NIACIN\SIMVASTATIN
  14. AUGMENTIN XR [Concomitant]
     Active Substance: AMOXICILLIN\CLAVULANATE POTASSIUM
  15. TRIMOX [Concomitant]
     Active Substance: AMOXICILLIN
  16. PLAVIX [Concomitant]
     Active Substance: CLOPIDOGREL BISULFATE
  17. NASONEX [Concomitant]
     Active Substance: MOMETASONE FUROATE
  18. PRILOSEC [Suspect]
     Active Substance: OMEPRAZOLE MAGNESIUM
     Indication: GASTROOESOPHAGEAL REFLUX DISEASE
     Route: 048
     Dates: start: 20010521, end: 20030109
  19. PRILOSEC [Suspect]
     Active Substance: OMEPRAZOLE MAGNESIUM
     Indication: GASTROOESOPHAGEAL REFLUX DISEASE
     Dosage: GENERIC
     Route: 048
     Dates: start: 20030114, end: 20030214
  20. PRILOSEC OTC [Suspect]
     Active Substance: OMEPRAZOLE MAGNESIUM
     Indication: GASTROOESOPHAGEAL REFLUX DISEASE
     Route: 048
     Dates: start: 200306, end: 2015
  21. XALATAN [Concomitant]
     Active Substance: LATANOPROST
  22. AMARYL [Concomitant]
     Active Substance: GLIMEPIRIDE
  23. PRILOSEC OTC [Suspect]
     Active Substance: OMEPRAZOLE MAGNESIUM
     Indication: GASTROOESOPHAGEAL REFLUX DISEASE
     Route: 048
     Dates: start: 200105, end: 200212
  24. CATAPRES [Concomitant]
     Active Substance: CLONIDINE HYDROCHLORIDE
  25. HYDRALAZINE [Concomitant]
     Active Substance: HYDRALAZINE HYDROCHLORIDE
  26. PRILOSEC [Suspect]
     Active Substance: OMEPRAZOLE MAGNESIUM
     Indication: GASTROOESOPHAGEAL REFLUX DISEASE
     Route: 048
     Dates: start: 19920114, end: 20170824
  27. NIASPAN [Concomitant]
     Active Substance: NIACIN
  28. LOTREL [Concomitant]
     Active Substance: AMLODIPINE BESYLATE\BENAZEPRIL HYDROCHLORIDE
  29. HYDROCHLOROTHIAZIDE. [Concomitant]
     Active Substance: HYDROCHLOROTHIAZIDE
  30. RANEXA [Concomitant]
     Active Substance: RANOLAZINE

REACTIONS (8)
  - Renal injury [Unknown]
  - Acute kidney injury [Unknown]
  - Chronic kidney disease [Recovered/Resolved]
  - End stage renal disease [Unknown]
  - Renal ischaemia [Unknown]
  - Respiratory failure [Fatal]
  - Renal failure [Fatal]
  - Atrial fibrillation [Fatal]

NARRATIVE: CASE EVENT DATE: 20080512
